FAERS Safety Report 8029822-5 (Version None)
Quarter: 2012Q1

REPORT INFORMATION
  Report Type: 
  Country: None (occurrence: None)
  Receive Date: 20120109
  Receipt Date: 20120106
  Transmission Date: 20120608
  Serious: Yes (Other)
  Sender: FDA-Public Use
  Company Number: US-PFIZER INC-2012004986

PATIENT
  Age: 39 Year
  Sex: Female
  Weight: 57.143 kg

DRUGS (5)
  1. CHANTIX [Suspect]
     Dosage: 0.5 MG, UNK
     Route: 048
  2. EFFEXOR [Concomitant]
     Indication: DEPRESSION
     Dosage: UNK
     Route: 048
  3. CHANTIX [Suspect]
     Indication: SMOKING CESSATION THERAPY
     Dosage: 0.5 MG, DAILY
     Route: 048
     Dates: start: 20111227
  4. CHANTIX [Suspect]
     Dosage: UNK
     Route: 048
  5. EFFEXOR [Concomitant]
     Indication: ANXIETY

REACTIONS (7)
  - EMOTIONAL DISORDER [None]
  - SOMNOLENCE [None]
  - DEPRESSED MOOD [None]
  - FATIGUE [None]
  - CRYING [None]
  - DEPRESSION [None]
  - DYSGEUSIA [None]
